FAERS Safety Report 21194566 (Version 1)
Quarter: 2022Q3

REPORT INFORMATION
  Report Type: Spontaneous
  Country: BR (occurrence: BR)
  Receive Date: 20220810
  Receipt Date: 20220810
  Transmission Date: 20221026
  Serious: Yes (Hospitalization, Other)
  Sender: FDA-Public Use
  Company Number: None

PATIENT
  Age: 2 Month
  Sex: Female

DRUGS (5)
  1. TOBRAMYCIN [Suspect]
     Active Substance: TOBRAMYCIN
     Indication: Infective keratitis
     Route: 047
  2. AZITHROMYCIN [Suspect]
     Active Substance: AZITHROMYCIN
     Indication: Product used for unknown indication
     Route: 042
  3. CEFTAZIDIME [Suspect]
     Active Substance: CEFTAZIDIME
     Indication: Infective keratitis
     Route: 047
  4. MOXIFLOXACIN [Suspect]
     Active Substance: MOXIFLOXACIN
     Indication: Infective keratitis
     Route: 047
  5. VANCOMYCIN [Suspect]
     Active Substance: VANCOMYCIN
     Indication: Infective keratitis
     Route: 047

REACTIONS (2)
  - Hypopyon [Recovered/Resolved]
  - Drug ineffective [Recovered/Resolved]
